FAERS Safety Report 14221606 (Version 2)
Quarter: 2017Q4

REPORT INFORMATION
  Report Type: Report from Study
  Country: US (occurrence: US)
  Receive Date: 20171124
  Receipt Date: 20171204
  Transmission Date: 20180321
  Serious: Yes (Death)
  Sender: FDA-Public Use
  Company Number: US-ACTELION-A-US2010-40681

PATIENT
  Age: 73 Year
  Sex: Female

DRUGS (13)
  1. TRACLEER [Suspect]
     Active Substance: BOSENTAN
     Indication: PULMONARY HYPERTENSION
     Dosage: 125 MG, BID
     Route: 048
     Dates: start: 20081202, end: 20171106
  2. TRIAMCINOLONE [Concomitant]
     Active Substance: TRIAMCINOLONE
     Dosage: 0-1
     Route: 061
     Dates: start: 20110413
  3. WARFARIN [Concomitant]
     Active Substance: WARFARIN
     Dosage: 5 MG, AS DIRECTED
     Dates: start: 20040920
  4. DILTIAZEM. [Concomitant]
     Active Substance: DILTIAZEM
     Dosage: 360 MG, QD
     Route: 048
     Dates: start: 20160107
  5. FERROUS SULFATE. [Concomitant]
     Active Substance: FERROUS SULFATE
     Dosage: 325 MG, QD
     Route: 048
     Dates: start: 20160107
  6. FUROSEMIDE. [Concomitant]
     Active Substance: FUROSEMIDE
     Dosage: 40 MG, QD
     Route: 048
     Dates: start: 20151019
  7. VITAMIN D3 [Concomitant]
     Active Substance: CHOLECALCIFEROL
     Dosage: 1000 U, EVERY OTHER DAY
     Dates: start: 20080701
  8. CETIRIZINE [Concomitant]
     Active Substance: CETIRIZINE HYDROCHLORIDE
     Dosage: 10 MG, 1/2 TAB PRN
     Dates: start: 20040505
  9. CLINDAMYCIN. [Concomitant]
     Active Substance: CLINDAMYCIN
     Dosage: 150 MG, 4 CAPSULES BEFORE A PROCEDURE
     Dates: start: 20150909
  10. LATANOPROST. [Concomitant]
     Active Substance: LATANOPROST
     Dosage: ONE DROP
     Dates: start: 20040510
  11. OXYGEN. [Concomitant]
     Active Substance: OXYGEN
     Dosage: 21 L/MIN, CONT INFUS
     Dates: start: 20160624
  12. AMLODIPINE [Concomitant]
     Active Substance: AMLODIPINE BESYLATE
     Dosage: 5 MG, UNK
     Route: 048
     Dates: start: 20170914
  13. SIMETHICONE (DIMETHICONE) [Concomitant]
     Active Substance: DIMETHICONE
     Dosage: 80 MG, 1 TABLET UP TO  QID
     Dates: start: 20151125

REACTIONS (5)
  - Seasonal allergy [Not Recovered/Not Resolved]
  - Sinus disorder [Not Recovered/Not Resolved]
  - Nasal congestion [Not Recovered/Not Resolved]
  - Dry throat [Not Recovered/Not Resolved]
  - Death [Fatal]

NARRATIVE: CASE EVENT DATE: 201010
